FAERS Safety Report 9656022 (Version 1)
Quarter: 2013Q4

REPORT INFORMATION
  Report Type: Spontaneous
  Country: US (occurrence: US)
  Receive Date: 20131030
  Receipt Date: 20131030
  Transmission Date: 20140711
  Serious: No
  Sender: FDA-Public Use
  Company Number: US-US-EMD SERONO, INC.-7245140

PATIENT
  Age: 52 Year
  Sex: Female

DRUGS (1)
  1. REBIF [Suspect]
     Indication: MULTIPLE SCLEROSIS
     Route: 058
     Dates: start: 20090514, end: 201309

REACTIONS (4)
  - Fall [Not Recovered/Not Resolved]
  - Influenza [Unknown]
  - Vision blurred [Not Recovered/Not Resolved]
  - Influenza like illness [Unknown]
